FAERS Safety Report 25700043 (Version 1)
Quarter: 2025Q3

REPORT INFORMATION
  Report Type: Spontaneous
  Country: GB (occurrence: GB)
  Receive Date: 20250819
  Receipt Date: 20250819
  Transmission Date: 20251020
  Serious: Yes (Disabling, Other)
  Sender: IDORSIA PHARMACEUTICALS
  Company Number: None

PATIENT
  Age: 34 Year
  Sex: Female

DRUGS (1)
  1. QUVIVIQ [Suspect]
     Active Substance: DARIDOREXANT
     Indication: Poor quality sleep
     Dosage: 25 MG, QD
     Route: 048

REACTIONS (4)
  - Medication error [Unknown]
  - Sleep terror [Recovered/Resolved]
  - Somnolence [Recovered/Resolved]
  - Enuresis [Recovered/Resolved]
